FAERS Safety Report 6461520-1 (Version None)
Quarter: 2009Q4

REPORT INFORMATION
  Report Type: 
  Country: None (occurrence: None)
  Receive Date: 20091123
  Receipt Date: 20091118
  Transmission Date: 20100525
  Serious: Yes (Other)
  Sender: FDA-Public Use
  Company Number: 2009SP011915

PATIENT
  Age: 77 Year
  Sex: Male
  Weight: 68 kg

DRUGS (2)
  1. NASONEX [Suspect]
     Indication: RHINITIS
     Dosage: 2 DF; QD; NAS
     Route: 045
     Dates: start: 20070301, end: 20071001
  2. TAHOR [Concomitant]

REACTIONS (1)
  - HYPOSMIA [None]
